FAERS Safety Report 12306580 (Version 1)
Quarter: 2016Q2

REPORT INFORMATION
  Report Type: Spontaneous
  Country: US (occurrence: US)
  Receive Date: 20160426
  Receipt Date: 20160426
  Transmission Date: 20160815
  Serious: Yes (Other)
  Sender: FDA-Public Use
  Company Number: US-TEVA-654001USA

PATIENT
  Age: 49 Year
  Sex: Female

DRUGS (1)
  1. ZECUITY [Suspect]
     Active Substance: SUMATRIPTAN SUCCINATE
     Route: 062
     Dates: start: 20160418

REACTIONS (6)
  - Application site warmth [Unknown]
  - Application site erythema [Unknown]
  - Intentional product misuse [Unknown]
  - Thermal burn [Unknown]
  - Application site pain [Unknown]
  - Device battery issue [Unknown]

NARRATIVE: CASE EVENT DATE: 20160418
